FAERS Safety Report 12736817 (Version 1)
Quarter: 2016Q3

REPORT INFORMATION
  Report Type: Spontaneous
  Country: US (occurrence: US)
  Receive Date: 20160913
  Receipt Date: 20160913
  Transmission Date: 20161109
  Serious: Yes (Hospitalization, Other)
  Sender: FDA-Public Use
  Company Number: US-AUROBINDO-AUR-APL-2016-11432

PATIENT
  Age: 34 Year
  Sex: Female

DRUGS (1)
  1. HYDROMORPHONE [Suspect]
     Active Substance: HYDROMORPHONE
     Indication: PRODUCT USED FOR UNKNOWN INDICATION
     Route: 065

REACTIONS (6)
  - Palatal oedema [Recovered/Resolved]
  - Oedema mucosal [Recovered/Resolved]
  - Angioedema [Recovered/Resolved]
  - Tongue oedema [Recovered/Resolved]
  - Stridor [Recovered/Resolved]
  - Respiratory tract oedema [Recovered/Resolved]
